FAERS Safety Report 8805126 (Version 1)
Quarter: 2012Q4

REPORT INFORMATION
  Report Type: Report from Study
  Country: AU (occurrence: AU)
  Receive Date: 20120924
  Receipt Date: 20120924
  Transmission Date: 20130627
  Serious: Yes (Other)
  Sender: FDA-Public Use
  Company Number: AU-ROCHE-1127980

PATIENT
  Sex: Male

DRUGS (3)
  1. MABTHERA [Suspect]
     Indication: ANTIPHOSPHOLIPID SYNDROME
     Route: 065
  2. METHYLPREDNISOLONE [Concomitant]
  3. INTRAGAM [Concomitant]

REACTIONS (2)
  - Haemoptysis [Unknown]
  - Condition aggravated [Unknown]
